FAERS Safety Report 16855380 (Version 1)
Quarter: 2019Q3

REPORT INFORMATION
  Report Type: Spontaneous
  Country: US (occurrence: US)
  Receive Date: 20190926
  Receipt Date: 20190926
  Transmission Date: 20191005
  Serious: Yes (Hospitalization, Other)
  Sender: FDA-Public Use
  Company Number: US-BAYER-2019-174210

PATIENT
  Age: 60 Year
  Sex: Male

DRUGS (8)
  1. ACETYLSALICYLIC ACID (CARDIO) [Suspect]
     Active Substance: ASPIRIN
  2. INSULIN GLARGINE [Concomitant]
     Active Substance: INSULIN GLARGINE
  3. TORSEMIDE. [Concomitant]
     Active Substance: TORSEMIDE
  4. SUCCINIC ACID [Concomitant]
     Active Substance: SUCCINIC ACID
  5. DABIGATRAN [Concomitant]
     Active Substance: DABIGATRAN
  6. METOPROLOL. [Concomitant]
     Active Substance: METOPROLOL
  7. ATORVASTATIN [Concomitant]
     Active Substance: ATORVASTATIN
  8. METFORMIN [Concomitant]
     Active Substance: METFORMIN HYDROCHLORIDE

REACTIONS (3)
  - Haematochezia [None]
  - Contraindicated product administered [None]
  - Lower gastrointestinal haemorrhage [None]
